FAERS Safety Report 5629975-X (Version None)
Quarter: 2008Q1

REPORT INFORMATION
  Report Type: 
  Country: None (occurrence: None)
  Receive Date: 20080218
  Receipt Date: 20080206
  Transmission Date: 20080703
  Serious: Yes (Other)
  Sender: FDA-Public Use
  Company Number: PT-ELI_LILLY_AND_COMPANY-PT200802001962

PATIENT
  Age: 53 Year
  Sex: Female

DRUGS (4)
  1. DULOXETINE HYDROCHLORIDE [Suspect]
     Indication: DEPRESSION
     Dosage: UNK UNK, DAILY (1/D)
     Route: 048
     Dates: start: 20080126, end: 20080126
  2. BLOPRESS [Concomitant]
     Dosage: UNK, UNKNOWN
     Route: 065
  3. VIARTRIL [Concomitant]
     Dosage: UNK, UNKNOWN
     Route: 065
  4. LERCANIDIPINE HYDROCHLORIDE [Concomitant]
     Dosage: UNK, UNKNOWN
     Route: 065

REACTIONS (5)
  - COLD SWEAT [None]
  - LOSS OF CONSCIOUSNESS [None]
  - MALAISE [None]
  - NAUSEA [None]
  - TACHYCARDIA [None]
